FAERS Safety Report 6064146-7 (Version None)
Quarter: 2009Q1

REPORT INFORMATION
  Report Type: 
  Country: None (occurrence: None)
  Receive Date: 20090204
  Receipt Date: 20090129
  Transmission Date: 20090719
  Serious: Yes (Other)
  Sender: FDA-Public Use
  Company Number: US-BAYER-200841537NA

PATIENT
  Age: 41 Year
  Sex: Female
  Weight: 86 kg

DRUGS (3)
  1. YAZ [Suspect]
     Indication: MENOMETRORRHAGIA
     Route: 048
     Dates: start: 20081201
  2. MULTI-VITAMIN [Concomitant]
  3. LOVAZA [Concomitant]

REACTIONS (3)
  - AFFECT LABILITY [None]
  - DEPRESSION [None]
  - SUICIDAL IDEATION [None]
